FAERS Safety Report 12628792 (Version 1)
Quarter: 2016Q3

REPORT INFORMATION
  Report Type: Report from Study
  Country: FR (occurrence: FR)
  Receive Date: 20160808
  Receipt Date: 20160808
  Transmission Date: 20161109
  Serious: Yes (Hospitalization)
  Sender: FDA-Public Use
  Company Number: FR-ROCHE-1041520

PATIENT
  Age: 71 Year
  Sex: Female

DRUGS (24)
  1. LASILIX [Suspect]
     Active Substance: FUROSEMIDE
     Dosage: THERAPY DISCONTINUED.
     Route: 065
     Dates: start: 20091130
  2. SOLUPRED (FRANCE) [Concomitant]
     Active Substance: PREDNISOLONE
     Route: 065
     Dates: start: 20090220
  3. SOLUPRED (FRANCE) [Concomitant]
     Active Substance: PREDNISOLONE
     Route: 065
     Dates: start: 20091210, end: 20091210
  4. SOLUPRED (FRANCE) [Concomitant]
     Active Substance: PREDNISOLONE
     Route: 065
     Dates: start: 20091211, end: 20091211
  5. ATENOLOL. [Concomitant]
     Active Substance: ATENOLOL
     Route: 065
     Dates: start: 20090224
  6. BACTRIM [Concomitant]
     Active Substance: SULFAMETHOXAZOLE\TRIMETHOPRIM
     Route: 065
     Dates: start: 20090222
  7. BICARBONATE DE SODIUM [Concomitant]
     Active Substance: SODIUM BICARBONATE
     Route: 065
     Dates: start: 20090309
  8. KAYEXALATE [Concomitant]
     Active Substance: SODIUM POLYSTYRENE SULFONATE
     Dosage: 1 DOSE FORM
     Route: 065
     Dates: start: 20090210
  9. SOLUPRED (FRANCE) [Concomitant]
     Active Substance: PREDNISOLONE
     Route: 065
     Dates: start: 20091212, end: 20091212
  10. SOLUPRED (FRANCE) [Concomitant]
     Active Substance: PREDNISOLONE
     Route: 048
  11. INEXIUM [Concomitant]
     Active Substance: ESOMEPRAZOLE
     Route: 002
     Dates: start: 20090221
  12. PROGRAF [Concomitant]
     Active Substance: TACROLIMUS\TACROLIMUS ANHYDROUS
     Dosage: ONCE EVERY 2 DAYS
     Route: 065
     Dates: start: 20090222
  13. AMLOR [Concomitant]
     Active Substance: AMLODIPINE BESYLATE
     Route: 065
     Dates: start: 20090223
  14. LEXOMIL [Concomitant]
     Active Substance: BROMAZEPAM
     Route: 065
     Dates: start: 20091130
  15. RITUXIMAB [Suspect]
     Active Substance: RITUXIMAB
     Indication: PROPHYLAXIS AGAINST TRANSPLANT REJECTION
     Route: 042
     Dates: start: 20090307
  16. LASILIX [Suspect]
     Active Substance: FUROSEMIDE
     Indication: PRODUCT USED FOR UNKNOWN INDICATION
     Route: 065
     Dates: start: 20090621, end: 20090730
  17. TARDYFERON (FRANCE) [Concomitant]
     Route: 065
     Dates: start: 20090702
  18. BICARBONATE DE SODIUM [Concomitant]
     Active Substance: SODIUM BICARBONATE
     Route: 065
     Dates: start: 20091119
  19. ARANESP [Concomitant]
     Active Substance: DARBEPOETIN ALFA
     Route: 065
     Dates: start: 20091230
  20. CELLCEPT [Concomitant]
     Active Substance: MYCOPHENOLATE MOFETIL\MYCOPHENOLATE MOFETIL HYDROCHLORIDE
     Route: 065
     Dates: start: 20090219
  21. SOLUPRED (FRANCE) [Concomitant]
     Active Substance: PREDNISOLONE
     Route: 065
     Dates: start: 20091117
  22. KARDEGIC [Concomitant]
     Active Substance: ASPIRIN LYSINE
     Route: 065
     Dates: start: 20090316
  23. EUPRESSYL [Concomitant]
     Active Substance: URAPIDIL
     Route: 065
     Dates: start: 20090402
  24. ROVALCYTE [Concomitant]
     Active Substance: VALGANCICLOVIR HYDROCHLORIDE
     Route: 065
     Dates: start: 20090303

REACTIONS (5)
  - BK virus infection [Recovered/Resolved with Sequelae]
  - Pyelonephritis [Recovered/Resolved with Sequelae]
  - Polyomavirus-associated nephropathy [Recovered/Resolved with Sequelae]
  - Acute kidney injury [Recovered/Resolved]
  - Renal impairment [Recovered/Resolved with Sequelae]

NARRATIVE: CASE EVENT DATE: 20090728
